FAERS Safety Report 24446768 (Version 1)
Quarter: 2024Q4

REPORT INFORMATION
  Report Type: Spontaneous
  Country: CA (occurrence: CA)
  Receive Date: 20241016
  Receipt Date: 20241016
  Transmission Date: 20250115
  Serious: Yes (Death, Other)
  Sender: PFIZER
  Company Number: CA-SEATTLE GENETICS-2024SGN04936

PATIENT
  Age: 46 Year
  Sex: Female

DRUGS (1)
  1. TUKYSA [Suspect]
     Active Substance: TUCATINIB
     Indication: HER2 positive breast cancer
     Dosage: 150 MG, 2X/DAY
     Route: 048
     Dates: start: 20240130

REACTIONS (2)
  - Death [Fatal]
  - Neoplasm progression [Unknown]
